FAERS Safety Report 6618955-3 (Version None)
Quarter: 2010Q1

REPORT INFORMATION
  Report Type: 
  Country: None (occurrence: None)
  Receive Date: 20100302
  Receipt Date: 20100218
  Transmission Date: 20100710
  Serious: Yes (Other)
  Sender: FDA-Public Use
  Company Number: 2010SP010487

PATIENT
  Age: 56 Year
  Sex: Female

DRUGS (3)
  1. MIRALAX [Suspect]
     Indication: CONSTIPATION
     Dosage: QD; PO
     Route: 048
     Dates: end: 20100217
  2. OXYCONTIN [Concomitant]
  3. LISINOPRIL [Concomitant]

REACTIONS (12)
  - ASTHENIA [None]
  - BARRETT'S OESOPHAGUS [None]
  - CHOLELITHIASIS [None]
  - DRUG TOXICITY [None]
  - DYSCHEZIA [None]
  - HEPATIC FUNCTION ABNORMAL [None]
  - INFLUENZA LIKE ILLNESS [None]
  - LUNG NEOPLASM [None]
  - MYOCARDIAL INFARCTION [None]
  - RENAL CYST [None]
  - RENAL IMPAIRMENT [None]
  - WEIGHT DECREASED [None]
